FAERS Safety Report 21981283 (Version 3)
Quarter: 2023Q1

REPORT INFORMATION
  Report Type: Report from Study
  Country: US (occurrence: US)
  Receive Date: 20230211
  Receipt Date: 20230312
  Transmission Date: 20230417
  Serious: No
  Sender: FDA-Public Use
  Company Number: US-002147023-NVSC2023US031031

PATIENT
  Age: 71 Year
  Sex: Male
  Weight: 106.12 kg

DRUGS (1)
  1. LEQVIO [Suspect]
     Active Substance: INCLISIRAN SODIUM
     Indication: Low density lipoprotein increased
     Dosage: 284 MG, INITIAL AT 3 MONTHS, THEN EVERY 6 MONTHS TO FOLLOW
     Route: 058
     Dates: start: 20230116

REACTIONS (4)
  - General physical health deterioration [Unknown]
  - Contusion [Unknown]
  - Skin haemorrhage [Unknown]
  - Product dose omission issue [Unknown]

NARRATIVE: CASE EVENT DATE: 20230101
